FAERS Safety Report 18859041 (Version 1)
Quarter: 2021Q1

REPORT INFORMATION
  Report Type: Spontaneous
  Country: US (occurrence: US)
  Receive Date: 20210207
  Receipt Date: 20210207
  Transmission Date: 20210420
  Serious: Yes (Hospitalization)
  Sender: FDA-Public Use
  Company Number: None

PATIENT
  Age: 59 Year
  Sex: Male
  Weight: 76 kg

DRUGS (2)
  1. GABAPENTIN (GABAPENTIN 300MG CAP, UD) [Suspect]
     Active Substance: GABAPENTIN
     Indication: NEUROPATHY PERIPHERAL
     Route: 048
     Dates: start: 20201019, end: 20201031
  2. AMLODIPINE (AMLODIPINE BESYLATE 10MG TAB) [Suspect]
     Active Substance: AMLODIPINE BESYLATE
     Indication: HYPERTENSION
     Route: 048
     Dates: start: 20190530, end: 20201030

REACTIONS (11)
  - Oedema peripheral [None]
  - Dizziness [None]
  - Hepatic cirrhosis [None]
  - Pain in extremity [None]
  - Sepsis [None]
  - Pneumonia [None]
  - Brain natriuretic peptide increased [None]
  - Pulmonary hypertension [None]
  - Cardiac failure [None]
  - Alcohol withdrawal syndrome [None]
  - Weight increased [None]

NARRATIVE: CASE EVENT DATE: 20201107
